FAERS Safety Report 13551944 (Version 1)
Quarter: 2017Q2

REPORT INFORMATION
  Report Type: Spontaneous
  Country: HU (occurrence: HU)
  Receive Date: 20170516
  Receipt Date: 20170516
  Transmission Date: 20170830
  Serious: Yes (Hospitalization, Other)
  Sender: FDA-Public Use
  Company Number: HU-IMPAX LABORATORIES, INC-2017-IPXL-01308

PATIENT
  Age: 27 Year
  Sex: Male

DRUGS (1)
  1. DIVALPROEX SODIUM ER [Suspect]
     Active Substance: DIVALPROEX SODIUM
     Indication: INTENTIONAL OVERDOSE
     Dosage: 135 G, UNK
     Route: 048

REACTIONS (11)
  - Sepsis [Recovered/Resolved]
  - Hyperammonaemia [Recovered/Resolved]
  - Encephalopathy [Recovered/Resolved]
  - Anticonvulsant drug level increased [Recovered/Resolved]
  - Intentional overdose [Recovered/Resolved]
  - Bone marrow failure [Recovered/Resolved]
  - Left ventricular dysfunction [Recovered/Resolved]
  - Hypernatraemia [Recovered/Resolved]
  - Toxicity to various agents [Recovered/Resolved]
  - Atrial fibrillation [Recovered/Resolved]
  - Brain oedema [Recovered/Resolved]
